FAERS Safety Report 4679624-2 (Version None)
Quarter: 2005Q2

REPORT INFORMATION
  Report Type: 
  Country: None (occurrence: None)
  Receive Date: 20050531
  Receipt Date: 20050518
  Transmission Date: 20051028
  Serious: Yes (Hospitalization)
  Sender: FDA-Public Use
  Company Number: B0379462A

PATIENT
  Age: 95 Year
  Sex: Female
  Weight: 40.9145 kg

DRUGS (6)
  1. VALTREX [Suspect]
     Indication: HERPES ZOSTER
     Dosage: 1000 MG / THREE TIMES PER DAY / ORAL
     Route: 048
     Dates: start: 20050421, end: 20050425
  2. VALSARTAN [Concomitant]
  3. BROTIZOLAM [Concomitant]
  4. REBAMIPIDE [Concomitant]
  5. MAGNESIUM OXIDE [Concomitant]
  6. ETIZOLAM [Concomitant]

REACTIONS (3)
  - DELUSION [None]
  - DEPRESSED LEVEL OF CONSCIOUSNESS [None]
  - RENAL DISORDER [None]
